FAERS Safety Report 23150412 (Version 1)
Quarter: 2023Q4

REPORT INFORMATION
  Report Type: Spontaneous
  Country: PT (occurrence: PT)
  Receive Date: 20231106
  Receipt Date: 20231106
  Transmission Date: 20240110
  Serious: Yes (Other)
  Sender: FDA-Public Use
  Company Number: PT-JNJFOC-20231071169

PATIENT

DRUGS (1)
  1. IMBRUVICA [Suspect]
     Active Substance: IBRUTINIB
     Indication: Chronic lymphocytic leukaemia
     Route: 048

REACTIONS (10)
  - Neoplasm [Unknown]
  - Systemic mycosis [Unknown]
  - Cerebrovascular accident [Unknown]
  - Herpes zoster disseminated [Unknown]
  - Arthralgia [Unknown]
  - Neuropathy peripheral [Unknown]
  - Haemoptysis [Unknown]
  - Haematotoxicity [Unknown]
  - Atrial fibrillation [Unknown]
  - Gastrointestinal haemorrhage [Unknown]
